FAERS Safety Report 4371011-X (Version None)
Quarter: 2004Q2

REPORT INFORMATION
  Report Type: 
  Country: None (occurrence: None)
  Receive Date: 20040603
  Receipt Date: 20040603
  Transmission Date: 20050107
  Serious: Yes (Other)
  Sender: FDA-Public Use
  Company Number: None

PATIENT
  Age: 95 Year
  Sex: Female
  Weight: 42.1845 kg

DRUGS (2)
  1. SULFAMETHOXAZOLE + TRIMETHOPRIM [Suspect]
     Indication: URINARY TRACT INFECTION
     Dosage: BACTRIM DS BID X 10DAYS
     Dates: start: 20030528, end: 20040523
  2. PROCAINAMIDE [Suspect]
     Indication: ATRIAL FIBRILLATION
     Dosage: PROCAN BID 500 MG BID
     Dates: start: 20040513, end: 20040523

REACTIONS (3)
  - DECREASED APPETITE [None]
  - NAUSEA [None]
  - VOMITING [None]
